FAERS Safety Report 13515278 (Version 2)
Quarter: 2017Q2

REPORT INFORMATION
  Report Type: Spontaneous
  Country: US (occurrence: US)
  Receive Date: 20170504
  Receipt Date: 20170508
  Transmission Date: 20170830
  Serious: No
  Sender: FDA-Public Use
  Company Number: US-BAYER-2017-073571

PATIENT
  Sex: Female
  Weight: 89 kg

DRUGS (4)
  1. BAYER LOW DOSE [Suspect]
     Active Substance: ASPIRIN
     Indication: CARDIOVASCULAR DISORDER
     Dosage: 2 DF, QD
     Route: 048
     Dates: start: 2011
  2. ALEVE [Suspect]
     Active Substance: NAPROXEN SODIUM
  3. PROTONIX [Concomitant]
     Active Substance: PANTOPRAZOLE SODIUM
  4. LASIX [FUROSEMIDE SODIUM] [Concomitant]

REACTIONS (4)
  - Incorrect dosage administered [Unknown]
  - Product use complaint [None]
  - Product use in unapproved indication [Unknown]
  - Off label use [Unknown]
